FAERS Safety Report 8389705-8 (Version None)
Quarter: 2012Q2

REPORT INFORMATION
  Report Type: 
  Country: None (occurrence: None)
  Receive Date: 20120529
  Receipt Date: 20120515
  Transmission Date: 20120825
  Serious: Yes (Death, Hospitalization, Congenital Anomaly, Other)
  Sender: FDA-Public Use
  Company Number: DE-RANBAXY-2012RR-56596

PATIENT
  Sex: Female
  Weight: 3 kg

DRUGS (9)
  1. FOLIO FORTE [Concomitant]
     Dosage: 0.8 MG/DAY
     Route: 064
     Dates: start: 20100919, end: 20110404
  2. ALBUTEROL [Concomitant]
     Dosage: UNK
     Route: 064
     Dates: start: 20101220, end: 20101225
  3. EMSER NASENSPRAY [Concomitant]
     Dosage: UNK
     Route: 064
     Dates: start: 20101220, end: 20101226
  4. EBENOL [Concomitant]
     Dosage: UNK
     Route: 064
     Dates: start: 20101114, end: 20101117
  5. CLOTRIMAZOLE [Concomitant]
     Dosage: UNK
     Route: 064
  6. METFORMIN HCL [Suspect]
     Dosage: UNK
     Route: 064
  7. LEVOTHYROXINE SODIUM [Concomitant]
     Dosage: 100 UG/DAY
     Route: 064
     Dates: start: 20100913, end: 20110726
  8. CETIRIZINE [Concomitant]
     Dosage: UNK
     Route: 064
  9. PROGESTERONE [Concomitant]
     Dosage: 100 MG/DAY
     Route: 064
     Dates: start: 20100912, end: 20101114

REACTIONS (2)
  - HYPOPLASTIC LEFT HEART SYNDROME [None]
  - TURNER'S SYNDROME [None]
